FAERS Safety Report 16468389 (Version 1)
Quarter: 2019Q3

REPORT INFORMATION
  Report Type: Spontaneous
  Country: US (occurrence: US)
  Receive Date: 20190623
  Receipt Date: 20190623
  Transmission Date: 20191004
  Serious: No
  Sender: FDA-Public Use
  Company Number: None

PATIENT
  Age: 52 Year
  Sex: Female
  Weight: 72.57 kg

DRUGS (7)
  1. ROWASA [Suspect]
     Active Substance: MESALAMINE
  2. CANASA SUPPOSITORY [Concomitant]
  3. MULTIVITAMIN [Concomitant]
     Active Substance: VITAMINS
  4. PROBIOTICS [Concomitant]
     Active Substance: PROBIOTICS NOS
  5. ENTYVIO [Suspect]
     Active Substance: VEDOLIZUMAB
  6. AMLODIPINE [Concomitant]
     Active Substance: AMLODIPINE BESYLATE
  7. UCERIS FOAM [Concomitant]

REACTIONS (1)
  - Pyrexia [None]

NARRATIVE: CASE EVENT DATE: 20190610
